FAERS Safety Report 20398852 (Version 2)
Quarter: 2022Q1

REPORT INFORMATION
  Report Type: Spontaneous
  Country: US (occurrence: US)
  Receive Date: 20220131
  Receipt Date: 20220201
  Transmission Date: 20220423
  Serious: No
  Sender: FDA-Public Use
  Company Number: US-ABBVIE-21K-163-3851634-00

PATIENT
  Sex: Female

DRUGS (2)
  1. HUMIRA [Suspect]
     Active Substance: ADALIMUMAB
     Indication: Psoriasis
     Route: 058
     Dates: start: 202011
  2. COVID-19 VACCINE [Concomitant]
     Indication: COVID-19 immunisation
     Route: 030

REACTIONS (7)
  - Psoriasis [Unknown]
  - Skin disorder [Unknown]
  - Pain [Unknown]
  - Mobility decreased [Unknown]
  - Spinal pain [Unknown]
  - Adverse drug reaction [Unknown]
  - Renal impairment [Unknown]
